FAERS Safety Report 6438912-X (Version None)
Quarter: 2009Q4

REPORT INFORMATION
  Report Type: 
  Country: None (occurrence: None)
  Receive Date: 20091113
  Receipt Date: 20091109
  Transmission Date: 20100525
  Serious: Yes (Death)
  Sender: FDA-Public Use
  Company Number: PHHY2009CA37242

PATIENT
  Sex: Male

DRUGS (3)
  1. CLOZARIL [Suspect]
     Indication: SCHIZOPHRENIA
     Dosage: 150 MG PER DAY
     Route: 048
     Dates: start: 20020101, end: 20090704
  2. RISPERDAL [Concomitant]
     Dosage: 2 MG, HS
  3. METFORMIN HCL [Concomitant]
     Dosage: 150 UNK, QD

REACTIONS (2)
  - CARDIAC ARREST [None]
  - MYOCARDIAL INFARCTION [None]
